FAERS Safety Report 6309743-6 (Version None)
Quarter: 2009Q3

REPORT INFORMATION
  Report Type: 
  Country: None (occurrence: None)
  Receive Date: 20090814
  Receipt Date: 20090811
  Transmission Date: 20100115
  Serious: No
  Sender: FDA-Public Use
  Company Number: US-B.I. PHARMACEUTICALS,INC./RIDGEFIELD-2009-BP-09512BP

PATIENT
  Age: 75 Year
  Sex: Female

DRUGS (6)
  1. SPIRIVA [Suspect]
     Indication: CHRONIC OBSTRUCTIVE PULMONARY DISEASE
     Dosage: 18 MCG
     Route: 055
     Dates: start: 20060101
  2. ADVAIR HFA [Concomitant]
     Indication: CHRONIC OBSTRUCTIVE PULMONARY DISEASE
  3. TRICOR [Concomitant]
     Indication: BLOOD CHOLESTEROL INCREASED
  4. PROZAC [Concomitant]
     Indication: DEPRESSION
  5. NAPROXEN [Concomitant]
     Indication: ARTHRITIS
  6. VICODIN [Concomitant]
     Indication: ARTHRITIS

REACTIONS (3)
  - ARTHRITIS [None]
  - CATARACT [None]
  - EYE PRURITUS [None]
